FAERS Safety Report 5088057-9 (Version None)
Quarter: 2006Q3

REPORT INFORMATION
  Report Type: 
  Country: None (occurrence: None)
  Receive Date: 20060727
  Receipt Date: 20060503
  Transmission Date: 20061208
  Serious: Yes (Other)
  Sender: FDA-Public Use
  Company Number: 2006035787

PATIENT
  Age: 54 Year
  Sex: Female
  Weight: 52.1637 kg

DRUGS (5)
  1. LYRICA [Suspect]
     Indication: BURNING SENSATION
     Dosage: 75 MG (75 MG, 2 IN 1 D), ORAL
     Route: 048
     Dates: start: 20060309, end: 20060309
  2. LYRICA [Suspect]
     Indication: HYPOAESTHESIA
     Dosage: 75 MG (75 MG, 2 IN 1 D), ORAL
     Route: 048
     Dates: start: 20060309, end: 20060309
  3. LYRICA [Suspect]
     Indication: MUSCLE SPASMS
     Dosage: 75 MG (75 MG, 2 IN 1 D), ORAL
     Route: 048
     Dates: start: 20060309, end: 20060309
  4. PAXIL [Concomitant]
  5. FUROSEMIDE [Concomitant]

REACTIONS (3)
  - DIZZINESS [None]
  - MIGRAINE [None]
  - NAUSEA [None]
